FAERS Safety Report 8553214-3 (Version None)
Quarter: 2012Q3

REPORT INFORMATION
  Report Type: 
  Country: None (occurrence: None)
  Receive Date: 20120731
  Receipt Date: 20120725
  Transmission Date: 20120928
  Serious: Yes (Other)
  Sender: FDA-Public Use
  Company Number: US-SANOFI-AVENTIS-2012SA053047

PATIENT
  Age: 69 Year
  Sex: Female

DRUGS (2)
  1. MULTAQ [Suspect]
     Indication: ATRIAL FIBRILLATION
     Route: 048
     Dates: start: 20120720
  2. CARTIA XT [Concomitant]

REACTIONS (3)
  - HEART RATE INCREASED [None]
  - ATRIAL FIBRILLATION [None]
  - MEMORY IMPAIRMENT [None]
